FAERS Safety Report 5837720-8 (Version None)
Quarter: 2008Q3

REPORT INFORMATION
  Report Type: 
  Country: None (occurrence: None)
  Receive Date: 20080807
  Receipt Date: 20080731
  Transmission Date: 20090109
  Serious: Yes (Hospitalization, Disabling)
  Sender: FDA-Public Use
  Company Number: US-MERCK-0806USA02878

PATIENT
  Age: 58 Year
  Sex: Female
  Weight: 105 kg

DRUGS (13)
  1. JANUVIA [Suspect]
     Indication: DIABETES MELLITUS
     Route: 048
     Dates: start: 20070701, end: 20071001
  2. JANUVIA [Suspect]
     Route: 048
     Dates: start: 20080107, end: 20080601
  3. JANUMET [Suspect]
     Indication: TYPE 2 DIABETES MELLITUS
     Route: 048
     Dates: start: 20071011, end: 20080601
  4. PROCARDIA XL [Concomitant]
     Indication: HYPERTENSION
     Route: 048
  5. HYDROCHLOROTHIAZIDE [Concomitant]
     Indication: HYPERTENSION
     Route: 048
  6. FORTAMET [Concomitant]
     Route: 048
  7. MAVIK [Concomitant]
     Indication: HYPERTENSION
     Route: 048
  8. LIPITOR [Concomitant]
     Indication: BLOOD CHOLESTEROL
     Route: 048
  9. MS CONTIN [Concomitant]
     Route: 065
  10. LORTAB [Concomitant]
     Route: 065
  11. HALICON [Concomitant]
     Route: 065
  12. HUMULIN 70/30 [Concomitant]
     Route: 058
  13. XANAX [Concomitant]
     Route: 065

REACTIONS (9)
  - ARTHRALGIA [None]
  - BACK PAIN [None]
  - CAROTID ARTERY DISEASE [None]
  - DRUG ERUPTION [None]
  - EXFOLIATIVE RASH [None]
  - HIATUS HERNIA [None]
  - INSOMNIA [None]
  - MYALGIA [None]
  - OVERDOSE [None]
